FAERS Safety Report 20503308 (Version 1)
Quarter: 2022Q1

REPORT INFORMATION
  Report Type: Spontaneous
  Country: US (occurrence: None)
  Receive Date: 20220222
  Receipt Date: 20220222
  Transmission Date: 20220423
  Serious: No
  Sender: FDA-Public Use
  Company Number: None

PATIENT
  Age: 68 Year
  Sex: Male
  Weight: 79.83 kg

DRUGS (10)
  1. CYCLOPHOSPHAMIDE [Suspect]
     Active Substance: CYCLOPHOSPHAMIDE
     Indication: Lymphocytic leukaemia
     Dosage: FREQUENCY : DAILY;?
     Route: 048
  2. ALUTICASONE [Concomitant]
  3. FOLIC ACID [Concomitant]
     Active Substance: FOLIC ACID
  4. IBUPROFEN [Concomitant]
     Active Substance: IBUPROFEN
  5. METHYLPHENIDATE [Concomitant]
     Active Substance: METHYLPHENIDATE
  6. FISH OIL\OMEGA-3 FATTY ACIDS [Concomitant]
     Active Substance: FISH OIL\OMEGA-3 FATTY ACIDS
  7. PANTOPRAZOLE [Concomitant]
     Active Substance: PANTOPRAZOLE
  8. PREDNISONE [Concomitant]
     Active Substance: PREDNISONE
  9. VALACYCLOVIR [Concomitant]
     Active Substance: VALACYCLOVIR HYDROCHLORIDE
  10. VITAMIN B12 [Concomitant]
     Active Substance: CYANOCOBALAMIN

REACTIONS (4)
  - Abdominal distension [None]
  - SARS-CoV-2 test positive [None]
  - Headache [None]
  - Sinus disorder [None]

NARRATIVE: CASE EVENT DATE: 20220221
